FAERS Safety Report 10246815 (Version 1)
Quarter: 2014Q2

REPORT INFORMATION
  Report Type: Spontaneous
  Country: GB (occurrence: GB)
  Receive Date: 20140619
  Receipt Date: 20140619
  Transmission Date: 20141212
  Serious: Yes (Other)
  Sender: FDA-Public Use
  Company Number: GB-WATSON-2014-12772

PATIENT
  Age: 36 Year
  Sex: Female
  Weight: 94 kg

DRUGS (4)
  1. RAMIPRIL (UNKNOWN) [Suspect]
     Indication: HYPERTENSION
     Dosage: 5 MG, UNKNOWN
     Route: 048
     Dates: start: 20140514, end: 20140523
  2. DEPO-PROVERA [Concomitant]
     Indication: CONTRACEPTION
     Dosage: 150 MG, UNKNOWN
     Route: 065
  3. CO-CODAMOL [Concomitant]
     Indication: ANALGESIC THERAPY
     Dosage: UNK; ONGOING.
     Route: 048
     Dates: start: 20140514
  4. AMOXICILLIN [Concomitant]
     Indication: SINUSITIS
     Dosage: 500 MG, UNKNOWN
     Route: 048
     Dates: start: 20140514, end: 20140521

REACTIONS (2)
  - Vasculitis [Not Recovered/Not Resolved]
  - Erythema multiforme [Not Recovered/Not Resolved]
